FAERS Safety Report 8059349-6 (Version None)
Quarter: 2012Q1

REPORT INFORMATION
  Report Type: 
  Country: None (occurrence: None)
  Receive Date: 20120120
  Receipt Date: 20120120
  Transmission Date: 20120608
  Serious: No
  Sender: FDA-Public Use
  Company Number: None

PATIENT
  Age: 54 Year
  Sex: Female
  Weight: 72.574 kg

DRUGS (1)
  1. CORTISONE ACETATE [Suspect]
     Indication: MUSCULOSKELETAL PAIN
     Dates: start: 20120104, end: 20120104

REACTIONS (1)
  - HYPERSENSITIVITY [None]
